FAERS Safety Report 5095183-7 (Version None)
Quarter: 2006Q3

REPORT INFORMATION
  Report Type: 
  Country: None (occurrence: None)
  Receive Date: 20060901
  Receipt Date: 20060710
  Transmission Date: 20061208
  Serious: Yes (Hospitalization)
  Sender: FDA-Public Use
  Company Number: 2006-004847

PATIENT
  Age: 59 Year
  Sex: Female
  Weight: 48.6 kg

DRUGS (4)
  1. FLOLAN [Suspect]
     Indication: DRUG USE FOR UNKNOWN INDICATION
     Route: 042
  2. DOCUSATE SODIUM [Concomitant]
     Dosage: 100MG PER DAY
     Route: 048
  3. LISINOPRIL [Concomitant]
     Indication: BLOOD PRESSURE
     Dosage: 2.5MG PER DAY
     Route: 048
  4. SIMETHICON [Concomitant]
     Dosage: 80MG PER DAY
     Route: 048

REACTIONS (2)
  - ADVERSE EVENT [None]
  - PHARMACEUTICAL PRODUCT COMPLAINT [None]
